FAERS Safety Report 19439630 (Version 2)
Quarter: 2021Q2

REPORT INFORMATION
  Report Type: Spontaneous
  Country: TW (occurrence: TW)
  Receive Date: 20210619
  Receipt Date: 20210623
  Transmission Date: 20210717
  Serious: Yes (Other)
  Sender: FDA-Public Use
  Company Number: NVSC2020TW337268

PATIENT
  Sex: Female
  Weight: 52 kg

DRUGS (10)
  1. CAPECITABINE. [Concomitant]
     Active Substance: CAPECITABINE
     Indication: COLON CANCER STAGE IV
     Dosage: UNK (MAINTENANCE THERAPY)
     Route: 065
     Dates: start: 20150716, end: 20150926
  2. DABRAFENIB [Suspect]
     Active Substance: DABRAFENIB
     Indication: COLON CANCER STAGE IV
     Dosage: UNK (5 CYCLES)
     Route: 065
     Dates: start: 20190522, end: 20190820
  3. DABRAFENIB [Suspect]
     Active Substance: DABRAFENIB
     Dosage: UNK (23 CYCLES)
     Route: 065
     Dates: start: 20190924, end: 20200930
  4. TRAMETINIB [Suspect]
     Active Substance: TRAMETINIB
     Dosage: UNK (23 CYCLES)
     Route: 065
     Dates: start: 20190924, end: 20200930
  5. CETUXIMAB. [Concomitant]
     Active Substance: CETUXIMAB
     Indication: COLON CANCER STAGE IV
     Dosage: UNK (5 CYCLES)
     Route: 065
     Dates: start: 20190522, end: 20190820
  6. FOLFIRI [Suspect]
     Active Substance: FLUOROURACIL\IRINOTECAN\LEUCOVORIN
     Indication: COLON CANCER STAGE IV
     Dosage: UNK (6 CYCLES)
     Route: 065
     Dates: start: 20150716, end: 20150926
  7. TRAMETINIB [Suspect]
     Active Substance: TRAMETINIB
     Indication: COLON CANCER STAGE IV
     Dosage: UNK (5 CYCLES)
     Route: 065
     Dates: start: 20190522, end: 20190820
  8. BEVACIZUMAB. [Concomitant]
     Active Substance: BEVACIZUMAB
     Indication: COLON CANCER STAGE IV
     Dosage: UNK (23 CYCLES)
     Route: 065
     Dates: start: 20190924, end: 20200930
  9. ERBITUX [Concomitant]
     Active Substance: CETUXIMAB
     Indication: COLON CANCER STAGE IV
     Dosage: UNK (6 CYCLES)
     Route: 065
     Dates: start: 20150716, end: 20150926
  10. REGORAFENIB. [Concomitant]
     Active Substance: REGORAFENIB
     Indication: COLON CANCER STAGE IV
     Route: 065

REACTIONS (3)
  - Colon cancer [Unknown]
  - Malignant neoplasm progression [Unknown]
  - Product use in unapproved indication [Unknown]
